FAERS Safety Report 19182402 (Version 2)
Quarter: 2021Q2

REPORT INFORMATION
  Report Type: Spontaneous
  Country: US (occurrence: US)
  Receive Date: 20210427
  Receipt Date: 20210525
  Transmission Date: 20210717
  Serious: Yes (Disabling)
  Sender: FDA-Public Use
  Company Number: US-ALVOGEN-2021-ALVOGEN-116858

PATIENT
  Age: 13 Year
  Sex: Female

DRUGS (1)
  1. LEVOTHYROXINE. [Suspect]
     Active Substance: LEVOTHYROXINE
     Indication: AUTOIMMUNE THYROIDITIS

REACTIONS (7)
  - Stupor [Recovering/Resolving]
  - Aphasia [Recovering/Resolving]
  - Chromaturia [Recovering/Resolving]
  - Abdominal pain upper [Recovering/Resolving]
  - Decreased appetite [Recovering/Resolving]
  - Lethargy [Recovering/Resolving]
  - Product substitution issue [Unknown]
